FAERS Safety Report 7446639-0 (Version None)
Quarter: 2011Q2

REPORT INFORMATION
  Report Type: 
  Country: None (occurrence: None)
  Receive Date: 20110429
  Receipt Date: 20101102
  Transmission Date: 20111010
  Serious: Yes (Hospitalization)
  Sender: FDA-Public Use
  Company Number: FR-ASTRAZENECA-2010SE52104

PATIENT
  Age: 2 Month
  Sex: Male

DRUGS (1)
  1. EMLA [Suspect]
     Indication: LOCAL ANAESTHESIA
     Route: 061
     Dates: start: 20100928, end: 20100928

REACTIONS (5)
  - GAMMA-GLUTAMYLTRANSFERASE INCREASED [None]
  - ASPARTATE AMINOTRANSFERASE INCREASED [None]
  - HYPOTONIA [None]
  - MALAISE [None]
  - LIVEDO RETICULARIS [None]
